FAERS Safety Report 21068779 (Version 1)
Quarter: 2022Q3

REPORT INFORMATION
  Report Type: Spontaneous
  Country: US (occurrence: US)
  Receive Date: 20220712
  Receipt Date: 20220712
  Transmission Date: 20221027
  Serious: No
  Sender: FDA-Public Use
  Company Number: US-ORGANON-O2207USA000627

PATIENT
  Sex: Female

DRUGS (6)
  1. FOLLISTIM AQ [Suspect]
     Active Substance: FOLLITROPIN
     Indication: Infertility female
     Dosage: INJECT 300 DOSAGE FORM (UNITS) UNDER THE SKIN (SUBCUTANEOUS INJECTION) ONCE DAILY AS DIRECTED, (STRE
     Route: 058
     Dates: start: 20220614
  2. PREGNYL [Concomitant]
     Active Substance: CHORIOGONADOTROPIN ALFA
     Dosage: UNK
  3. WATER FOR INJECTION [Concomitant]
     Active Substance: WATER
  4. GANIRELIX ACETATE [Concomitant]
     Active Substance: GANIRELIX ACETATE
     Dosage: UNK
  5. LEUPROLIDE ACETATE [Concomitant]
     Active Substance: LEUPROLIDE ACETATE
     Dosage: UNK
  6. MENOPUR [Concomitant]
     Active Substance: FOLLITROPIN\LUTEINIZING HORMONE
     Dosage: UNK

REACTIONS (1)
  - Fatigue [Unknown]

NARRATIVE: CASE EVENT DATE: 20220101
